FAERS Safety Report 7989579 (Version 4)
Quarter: 2013Q1

REPORT INFORMATION
  Report Type: Spontaneous
  Country: US (occurrence: US)
  Receive Date: 20110614
  Receipt Date: 20130228
  Transmission Date: 20140127
  Serious: Yes (Other)
  Sender: FDA-Public Use
  Company Number: US-JNJFOC-20110605209

PATIENT
  Age: 71 Year
  Sex: Female

DRUGS (6)
  1. DOXORUBICIN HYDROCHLORIDE (DOXIL) [Suspect]
     Indication: OVARIAN CANCER METASTATIC
     Route: 042
     Dates: start: 200605
  2. DOXORUBICIN HYDROCHLORIDE (DOXIL) [Suspect]
     Indication: OVARIAN CANCER METASTATIC
     Route: 042
     Dates: start: 2006, end: 2006
  3. CARBOPLATIN [Suspect]
     Indication: OVARIAN CANCER RECURRENT
     Route: 065
     Dates: start: 2006, end: 2006
  4. CARBOPLATIN [Suspect]
     Indication: OVARIAN CANCER RECURRENT
     Route: 065
  5. PACLITAXEL [Suspect]
     Indication: OVARIAN CANCER
     Route: 065
  6. CISPLATIN [Suspect]
     Indication: OVARIAN CANCER
     Route: 033

REACTIONS (2)
  - Squamous cell carcinoma of the tongue [Recovered/Resolved]
  - Squamous cell carcinoma of head and neck [Unknown]
